FAERS Safety Report 10215700 (Version 1)
Quarter: 2014Q2

REPORT INFORMATION
  Report Type: Spontaneous
  Country: US (occurrence: None)
  Receive Date: 20140603
  Receipt Date: 20140603
  Transmission Date: 20141212
  Serious: Yes (Hospitalization)
  Sender: FDA-Public Use
  Company Number: None

PATIENT
  Age: 71 Year
  Sex: Male

DRUGS (31)
  1. ZYTIGA [Suspect]
     Indication: PROSTATE CANCER
     Route: 048
     Dates: start: 20120330
  2. XANAX [Concomitant]
  3. PRILOSEC DR [Concomitant]
  4. XGEVA [Concomitant]
  5. RAPAFLO [Concomitant]
  6. VITAMIN D3 [Concomitant]
  7. ZOVIRAX [Concomitant]
  8. LUPRON DEPOT [Concomitant]
  9. LEVOQUIN [Concomitant]
  10. LIPITOR [Concomitant]
  11. ACBA III [Concomitant]
  12. ARCTICBLOX OMEGA 3 [Concomitant]
  13. B6 [Concomitant]
  14. B12 [Concomitant]
  15. COQ10 [Concomitant]
  16. CURCU-ESSENTIALS [Concomitant]
  17. ISOFLAVONE-250 [Concomitant]
  18. L-GLUTAMINE POWDER [Concomitant]
  19. LYCO-MAX [Concomitant]
  20. MAXIMUM C [Concomitant]
  21. MELATONIN P.R. [Concomitant]
  22. N-ACETYL CYSTEINE II [Concomitant]
  23. NUTRI-ESSENTIALS II [Concomitant]
  24. OPTI-CELL PLUS [Concomitant]
  25. MODIFIED CITRUS PECTIN POWDER [Concomitant]
  26. PROCAL III [Concomitant]
  27. RESVERATROL [Concomitant]
  28. SCUTELLARIA [Concomitant]
  29. ULTRA-LIPOIC FORTE [Concomitant]
  30. ULTRA REISHI [Concomitant]
  31. JEVTANA [Concomitant]

REACTIONS (2)
  - Urinary bladder haemorrhage [None]
  - Gallbladder disorder [None]
